FAERS Safety Report 4611473-3 (Version None)
Quarter: 2005Q1

REPORT INFORMATION
  Report Type: 
  Country: None (occurrence: None)
  Receive Date: 20050315
  Receipt Date: 20050315
  Transmission Date: 20050727
  Serious: Yes (Hospitalization)
  Sender: FDA-Public Use
  Company Number: None

PATIENT
  Age: 71 Year
  Sex: Male

DRUGS (2)
  1. DOCETAXEL [Suspect]
     Indication: LUNG NEOPLASM MALIGNANT
  2. INFLIXIMAB [Suspect]

REACTIONS (1)
  - PNEUMONITIS [None]
